FAERS Safety Report 21568629 (Version 1)
Quarter: 2022Q4

REPORT INFORMATION
  Report Type: Report from Study
  Country: RO (occurrence: RO)
  Receive Date: 20221108
  Receipt Date: 20221108
  Transmission Date: 20230113
  Serious: Yes (Life-Threatening, Hospitalization, Other)
  Sender: FDA-Public Use
  Company Number: RO-BRISTOL-MYERS SQUIBB COMPANY-2022-133066

PATIENT
  Age: 58 Year
  Sex: Male
  Weight: 98 kg

DRUGS (7)
  1. CARBOPLATIN [Suspect]
     Active Substance: CARBOPLATIN
     Indication: Non-small cell lung cancer
     Dosage: MOST RECENT DOSE ON 20SEP2022 (317 MG)
     Route: 065
     Dates: start: 20220811, end: 20220920
  2. PACLITAXEL [Suspect]
     Active Substance: PACLITAXEL
     Indication: Non-small cell lung cancer
     Dosage: MOST RECENT DOSE - 20SEP2022 (106 MG)
     Route: 065
     Dates: start: 20220811, end: 20220920
  3. METFORMINUM (SIOFOR) [Concomitant]
     Indication: Product used for unknown indication
     Dosage: ONCE
     Route: 048
     Dates: start: 2019
  4. PERINDOPRILUM + INDAPAMIDUM + AMLODIPINUM (TRIPLIXAM) [Concomitant]
     Indication: Product used for unknown indication
     Dosage: 1 DOSAGE FORM (UNITS NOT SPECIFIED)?ONCE.
     Route: 048
     Dates: start: 202206
  5. METOPROLOL [Concomitant]
     Active Substance: METOPROLOL
     Indication: Product used for unknown indication
     Dosage: ONCE
     Route: 048
     Dates: start: 2017
  6. APIXABANUM (ELIQUIS) [Concomitant]
     Indication: Product used for unknown indication
     Dosage: ONCE
     Route: 048
     Dates: start: 2017
  7. ATORVASTATIN [Concomitant]
     Active Substance: ATORVASTATIN
     Dosage: ONCE
     Route: 048
     Dates: start: 2017

REACTIONS (1)
  - Colitis ulcerative [Recovered/Resolved with Sequelae]

NARRATIVE: CASE EVENT DATE: 20221023
